FAERS Safety Report 7936669-4 (Version None)
Quarter: 2011Q4

REPORT INFORMATION
  Report Type: 
  Country: None (occurrence: None)
  Receive Date: 20111121
  Receipt Date: 20111028
  Transmission Date: 20120403
  Serious: Yes (Hospitalization)
  Sender: FDA-Public Use
  Company Number: 2011PROUSA00698

PATIENT
  Age: 80 Year
  Sex: Male
  Weight: 100.7 kg

DRUGS (11)
  1. CALTRATE WITH VITAMIN D (CALCIUM CARBONATE, COLECALCIFEROL) [Concomitant]
  2. GLUCOPHAGE [Concomitant]
  3. MICRONASE [Concomitant]
  4. LANOXIN [Concomitant]
  5. COUMADIN [Concomitant]
  6. PROVENGE [Suspect]
  7. DYAZIDE [Concomitant]
  8. TERNORMIN (ATENOLOL) [Concomitant]
  9. TRELSTAR (TRIPTORELIN EMBONATE) [Concomitant]
  10. PROVENGE [Suspect]
     Indication: PROSTATE CANCER
     Dosage: 250 ML, SINGLE, INTRAVENOUS
     Route: 042
     Dates: start: 20110916, end: 20110916
  11. PROVENGE [Suspect]
     Indication: PROSTATE CANCER
     Dosage: 250 ML, SINGLE, INTRAVENOUS
     Route: 042
     Dates: start: 20110930, end: 20110930

REACTIONS (3)
  - PNEUMONIA [None]
  - CONFUSIONAL STATE [None]
  - ACUTE SINUSITIS [None]
